FAERS Safety Report 12318643 (Version 1)
Quarter: 2016Q2

REPORT INFORMATION
  Report Type: Spontaneous
  Country: HR (occurrence: HR)
  Receive Date: 20160429
  Receipt Date: 20160429
  Transmission Date: 20160815
  Serious: Yes (Death, Hospitalization, Other)
  Sender: FDA-Public Use
  Company Number: HR-AMGEN-HRVSP2016053326

PATIENT
  Age: 70 Year
  Weight: 79 kg

DRUGS (8)
  1. VECTIBIX [Suspect]
     Active Substance: PANITUMUMAB
     Indication: PRODUCT USED FOR UNKNOWN INDICATION
     Dosage: UNK, UNK, 1ST CYCLE
     Route: 065
     Dates: start: 20151021, end: 20151026
  2. VECTIBIX [Suspect]
     Active Substance: PANITUMUMAB
     Dosage: UNK 3RD CYCLE
     Route: 065
     Dates: start: 20151210
  3. OXALIPLATIN. [Concomitant]
     Active Substance: OXALIPLATIN
     Dosage: UNK, 1ST CYCLE
     Dates: start: 20151021, end: 20151026
  4. OXALIPLATIN. [Concomitant]
     Active Substance: OXALIPLATIN
     Dosage: UNK, 3RD CYCLE
     Dates: start: 20151210
  5. 5-FU                               /00098801/ [Concomitant]
     Active Substance: FLUOROURACIL
     Dosage: UNK, 1ST CYCLE
     Dates: start: 20151021, end: 20151026
  6. LEUCOVORIN                         /00566701/ [Concomitant]
     Active Substance: LEUCOVORIN
     Dosage: UNK, 3RD CYCLE
     Dates: start: 20151210
  7. 5-FU                               /00098801/ [Concomitant]
     Active Substance: FLUOROURACIL
     Dosage: UNK, 3RD CYCLE
     Dates: start: 20151210
  8. LEUCOVORIN                         /00566701/ [Concomitant]
     Active Substance: LEUCOVORIN
     Dosage: UNK, 1ST CYCLE
     Dates: start: 20151021, end: 20151026

REACTIONS (2)
  - Lower gastrointestinal haemorrhage [Fatal]
  - Osteolysis [Unknown]

NARRATIVE: CASE EVENT DATE: 201510
